FAERS Safety Report 23887684 (Version 1)
Quarter: 2024Q2

REPORT INFORMATION
  Report Type: Spontaneous
  Country: GB (occurrence: GB)
  Receive Date: 20240523
  Receipt Date: 20240523
  Transmission Date: 20240716
  Serious: Yes (Other)
  Sender: FDA-Public Use
  Company Number: None

PATIENT
  Age: 62 Year
  Sex: Female
  Weight: 67 kg

DRUGS (5)
  1. DOXYCYCLINE [Suspect]
     Active Substance: DOXYCYCLINE\DOXYCYCLINE HYCLATE
     Dosage: TWO NOW THEN ONE DAILY
     Route: 065
     Dates: start: 20240509
  2. VAGIFEM [Concomitant]
     Active Substance: ESTRADIOL
     Dosage: USE AS DIRECTED, USE ONCE DAILY FOR FIRST 2 WEE
     Dates: start: 20210716
  3. CETRABEN [Concomitant]
     Dosage: USE AS DIRECTED; EMOLLIENT CREAM
     Dates: start: 20210716
  4. AZELASTINE [Concomitant]
     Active Substance: AZELASTINE\AZELASTINE HYDROCHLORIDE
     Dosage: ONE PUFF TWICE DAILY
     Dates: start: 20221005
  5. AMOXICILLIN [Concomitant]
     Active Substance: AMOXICILLIN
     Dosage: TIME INTERVAL: 0.33333333 DAYS
     Dates: start: 20240509

REACTIONS (4)
  - Photosensitivity reaction [Unknown]
  - Pruritus [Unknown]
  - Skin warm [Unknown]
  - Rash erythematous [Unknown]

NARRATIVE: CASE EVENT DATE: 20240509
